FAERS Safety Report 5015107-8 (Version None)
Quarter: 2006Q2

REPORT INFORMATION
  Report Type: 
  Country: None (occurrence: None)
  Receive Date: 20060530
  Receipt Date: 20060516
  Transmission Date: 20061013
  Serious: Yes (Hospitalization)
  Sender: FDA-Public Use
  Company Number: 2006-00701

PATIENT
  Age: 49 Year
  Sex: Male

DRUGS (7)
  1. VELCADE [Suspect]
     Indication: MULTIPLE MYELOMA
     Dosage: 2.80 MG, INTRAVENOUS
     Route: 042
     Dates: start: 20060216, end: 20060321
  2. DOXORUBICIN HCL [Suspect]
     Indication: MULTIPLE MYELOMA
     Dosage: 9.00 MG/M2, INTRAVENOUS
     Route: 042
     Dates: start: 20060216, end: 20060321
  3. DEXAMETHASONE [Suspect]
     Indication: MULTIPLE MYELOMA
     Dosage: 40.00 MG, ORAL
     Route: 048
     Dates: start: 20060216, end: 20060321
  4. PARACETAMOL [Concomitant]
  5. TRAMADOL HCL [Concomitant]
  6. MS CONTIN [Concomitant]
  7. BONEFOS  (CLODRONATE DISODIUM) [Concomitant]

REACTIONS (2)
  - HERPES ZOSTER DISSEMINATED [None]
  - PLATELET COUNT DECREASED [None]
